FAERS Safety Report 10010122 (Version 1)
Quarter: 2014Q1

REPORT INFORMATION
  Report Type: Spontaneous
  Country: US (occurrence: US)
  Receive Date: 20140312
  Receipt Date: 20140312
  Transmission Date: 20141002
  Serious: No
  Sender: FDA-Public Use
  Company Number: US-INCYTE CORPORATION-2013IN001831

PATIENT
  Age: 75 Year
  Sex: Male

DRUGS (6)
  1. JAKAFI [Suspect]
     Indication: NEOPLASM MALIGNANT
     Dosage: 15 MG, QD
     Route: 048
     Dates: start: 20130710
  2. HYDROXYUREA [Concomitant]
  3. LOSARTAN [Concomitant]
  4. PRILOSEC [Concomitant]
  5. PREDNISONE [Concomitant]
  6. VITAMIN D [Concomitant]
     Indication: NEOPLASM MALIGNANT

REACTIONS (1)
  - Eye haemorrhage [Not Recovered/Not Resolved]
